FAERS Safety Report 9071189 (Version 3)
Quarter: 2013Q1

REPORT INFORMATION
  Report Type: Spontaneous
  Country: JP (occurrence: JP)
  Receive Date: 20130206
  Receipt Date: 20130222
  Transmission Date: 20140127
  Serious: Yes (Death, Life-Threatening, Hospitalization)
  Sender: FDA-Public Use
  Company Number: JP-B.I. PHARMACEUTICALS,INC./RIDGEFIELD-2013-BI-02858NB

PATIENT
  Age: 68 None
  Sex: Male
  Weight: 57 kg

DRUGS (5)
  1. PRAZAXA [Suspect]
     Indication: ATRIAL FIBRILLATION
     Dosage: 220 MG
     Route: 048
     Dates: start: 20110804, end: 20130128
  2. LASIX [Concomitant]
     Indication: CARDIAC FAILURE
     Dosage: 20 MG
     Route: 048
     Dates: start: 20110804, end: 20130128
  3. ALDACTONE A [Concomitant]
     Indication: CARDIAC FAILURE
     Dosage: 25 MG
     Route: 048
     Dates: start: 20110804, end: 20130128
  4. MAINTATE [Concomitant]
     Indication: ATRIAL FIBRILLATION
     Dosage: 1.25 MG
     Route: 048
     Dates: start: 20110804, end: 20130128
  5. RENIVACE [Concomitant]
     Indication: CARDIAC FAILURE
     Dosage: 2.5 MG
     Route: 048
     Dates: start: 20111003, end: 20130128

REACTIONS (4)
  - General physical health deterioration [Fatal]
  - Liver disorder [Fatal]
  - Haemorrhage subcutaneous [Fatal]
  - Renal impairment [Unknown]
